FAERS Safety Report 7578226-8 (Version None)
Quarter: 2011Q2

REPORT INFORMATION
  Report Type: 
  Country: None (occurrence: None)
  Receive Date: 20110628
  Receipt Date: 20110621
  Transmission Date: 20111010
  Serious: Yes (Hospitalization)
  Sender: FDA-Public Use
  Company Number: B0728275A

PATIENT
  Sex: Female
  Weight: 60 kg

DRUGS (10)
  1. EVISTA [Concomitant]
     Dosage: 60MG PER DAY
     Route: 048
  2. VALTREX [Suspect]
     Indication: HERPES ZOSTER
     Dosage: 3000MG PER DAY
     Route: 048
     Dates: start: 20110617, end: 20110618
  3. MICARDIS [Concomitant]
     Dosage: 40MG PER DAY
     Route: 048
  4. CONIEL [Concomitant]
     Dosage: 4MG PER DAY
     Route: 048
  5. RIZABEN [Concomitant]
     Dosage: 1IUAX PER DAY
     Route: 048
  6. LOXONIN [Suspect]
     Dosage: 180MG PER DAY
     Route: 048
  7. CELESTAMINE TAB [Concomitant]
     Dosage: 1IUAX PER DAY
     Route: 048
  8. AZUNOL [Concomitant]
     Route: 061
  9. VALTREX [Suspect]
     Dosage: 2000MG PER DAY
     Route: 048
     Dates: start: 20110619
  10. VESICARE [Concomitant]
     Dosage: 2.5MG PER DAY
     Route: 048

REACTIONS (1)
  - ALTERED STATE OF CONSCIOUSNESS [None]
